FAERS Safety Report 11551686 (Version 2)
Quarter: 2015Q4

REPORT INFORMATION
  Report Type: Spontaneous
  Country: IT (occurrence: IT)
  Receive Date: 20150925
  Receipt Date: 20151013
  Transmission Date: 20160304
  Serious: Yes (Hospitalization)
  Sender: FDA-Public Use
  Company Number: IT-ROCHE-1637936

PATIENT
  Age: 93 Year
  Sex: Male

DRUGS (11)
  1. TALOFEN [Suspect]
     Active Substance: PROMAZINE HYDROCHLORIDE
     Indication: PRODUCT USED FOR UNKNOWN INDICATION
     Dosage: 4 G/100 ML ORAL DROPS, SOLUTION 30 ML BOTTLE
     Route: 048
     Dates: start: 20150907, end: 20150915
  2. FOLATE [Concomitant]
     Active Substance: FOLATE SODIUM
  3. TRITTICO [Concomitant]
     Active Substance: TRAZODONE HYDROCHLORIDE
     Route: 065
  4. TACHIDOL [Concomitant]
     Active Substance: ACETAMINOPHEN\CODEINE PHOSPHATE
  5. TORVAST [Concomitant]
     Active Substance: ATORVASTATIN
     Route: 065
  6. VITAMIN B12 [Concomitant]
     Active Substance: CYANOCOBALAMIN
  7. TALOFEN [Suspect]
     Active Substance: PROMAZINE HYDROCHLORIDE
     Route: 048
     Dates: start: 20150907
  8. LEXOTAN [Concomitant]
     Active Substance: BROMAZEPAM
     Route: 065
  9. CLOPIDOGREL [Concomitant]
     Active Substance: CLOPIDOGREL BISULFATE
     Route: 065
  10. RIVOTRIL [Suspect]
     Active Substance: CLONAZEPAM
     Indication: PRODUCT USED FOR UNKNOWN INDICATION
     Dosage: ^2,5 MG/ML ORAL DROPS, SOLUTION^ 10 ML BOTTLE
     Route: 048
     Dates: start: 20150907, end: 20150915
  11. TEGRETOL [Concomitant]
     Active Substance: CARBAMAZEPINE
     Route: 065

REACTIONS (3)
  - Asthenia [Recovering/Resolving]
  - Sopor [Recovering/Resolving]
  - Gait disturbance [Recovering/Resolving]

NARRATIVE: CASE EVENT DATE: 20150912
